FAERS Safety Report 21976902 (Version 2)
Quarter: 2023Q2

REPORT INFORMATION
  Report Type: Other
  Country: CN (occurrence: None)
  Receive Date: 20230210
  Receipt Date: 20230404
  Transmission Date: 20230722
  Serious: Yes (Other)
  Sender: FDA-Public Use
  Company Number: CN-ROCHE-3280786

PATIENT
  Age: 51 Year
  Sex: Female

DRUGS (20)
  1. CAPECITABINE [Suspect]
     Active Substance: CAPECITABINE
     Indication: Adenocarcinoma of colon
     Route: 065
     Dates: start: 201701
  2. CAPECITABINE [Suspect]
     Active Substance: CAPECITABINE
     Route: 065
     Dates: start: 20180723
  3. CAPECITABINE [Suspect]
     Active Substance: CAPECITABINE
     Indication: Adenocarcinoma of colon
     Route: 048
     Dates: start: 201902
  4. BEVACIZUMAB [Suspect]
     Active Substance: BEVACIZUMAB
     Indication: Adenocarcinoma of colon
     Route: 065
     Dates: start: 20180723
  5. BEVACIZUMAB [Suspect]
     Active Substance: BEVACIZUMAB
     Route: 065
     Dates: start: 20200930
  6. OXALIPLATIN [Suspect]
     Active Substance: OXALIPLATIN
     Indication: Adenocarcinoma of colon
     Route: 065
     Dates: start: 201701
  7. OXALIPLATIN [Suspect]
     Active Substance: OXALIPLATIN
     Route: 065
     Dates: start: 20180723
  8. OXALIPLATIN [Suspect]
     Active Substance: OXALIPLATIN
     Route: 065
     Dates: start: 20200930, end: 20201214
  9. LEUCOVORIN [Suspect]
     Active Substance: LEUCOVORIN
     Indication: Adenocarcinoma of colon
     Route: 065
     Dates: start: 20170910
  10. FLUOROURACIL [Suspect]
     Active Substance: FLUOROURACIL
     Indication: Adenocarcinoma of colon
     Route: 065
     Dates: start: 20170910
  11. IRINOTECAN [Suspect]
     Active Substance: IRINOTECAN
     Indication: Adenocarcinoma of colon
     Route: 065
     Dates: start: 20170910
  12. IRINOTECAN [Suspect]
     Active Substance: IRINOTECAN
     Route: 065
     Dates: start: 20190705
  13. REGORAFENIB [Suspect]
     Active Substance: REGORAFENIB
     Indication: Adenocarcinoma of colon
     Route: 048
     Dates: start: 20190426, end: 20190617
  14. CETUXIMAB [Suspect]
     Active Substance: CETUXIMAB
     Indication: Adenocarcinoma of colon
     Route: 065
     Dates: start: 20190705
  15. CETUXIMAB [Suspect]
     Active Substance: CETUXIMAB
     Route: 065
     Dates: start: 20191127, end: 20200927
  16. SINTILIMAB [Suspect]
     Active Substance: SINTILIMAB
     Indication: Adenocarcinoma of colon
     Route: 065
     Dates: start: 20200930
  17. SINTILIMAB [Suspect]
     Active Substance: SINTILIMAB
     Route: 065
     Dates: start: 202102, end: 202106
  18. LOBAPLATIN [Suspect]
     Active Substance: LOBAPLATIN
     Indication: Adenocarcinoma of colon
     Route: 065
     Dates: start: 20201214
  19. RALTITREXED [Suspect]
     Active Substance: RALTITREXED
     Indication: Adenocarcinoma of colon
     Route: 065
     Dates: start: 20200930
  20. FRUQUINTINIB [Concomitant]
     Active Substance: FRUQUINTINIB
     Route: 048
     Dates: start: 202104, end: 202106

REACTIONS (7)
  - Disease progression [Unknown]
  - Metastases to pelvis [Unknown]
  - Myelosuppression [Unknown]
  - Metastases to liver [Unknown]
  - Nausea [Unknown]
  - Vomiting [Unknown]
  - Alopecia [Unknown]

NARRATIVE: CASE EVENT DATE: 20170901
